FAERS Safety Report 5327424-2 (Version None)
Quarter: 2007Q2

REPORT INFORMATION
  Report Type: 
  Country: None (occurrence: None)
  Receive Date: 20070511
  Receipt Date: 20070426
  Transmission Date: 20071010
  Serious: Yes (Death)
  Sender: FDA-Public Use
  Company Number: 2007S1003266

PATIENT
  Age: 49 Year
  Sex: Male

DRUGS (4)
  1. FENTANYL TRANSDERMAL SYSTEM [Suspect]
     Dosage: 150 UG/HR; X1; TRANSDERMAL
     Route: 062
     Dates: end: 20070413
  2. TRAMADOL (CON.) [Concomitant]
  3. ALPRAZOLAM (CON.) [Concomitant]
  4. VICODIN (CON.) [Concomitant]

REACTIONS (1)
  - ACCIDENTAL OVERDOSE [None]
